FAERS Safety Report 15327475 (Version 1)
Quarter: 2018Q3

REPORT INFORMATION
  Report Type: Spontaneous
  Country: US (occurrence: US)
  Receive Date: 20180828
  Receipt Date: 20180828
  Transmission Date: 20181010
  Serious: No
  Sender: FDA-Public Use
  Company Number: US-ALLERGAN-1824629US

PATIENT
  Age: 75 Year
  Sex: Male

DRUGS (1)
  1. LEXAPRO [Suspect]
     Active Substance: ESCITALOPRAM OXALATE
     Indication: PRODUCT USED FOR UNKNOWN INDICATION
     Dosage: UNK
     Route: 065

REACTIONS (9)
  - Hypoaesthesia [Unknown]
  - Night sweats [Unknown]
  - Influenza like illness [Unknown]
  - Nausea [Unknown]
  - Panic attack [Unknown]
  - Tremor [Unknown]
  - Fatigue [Unknown]
  - Paraesthesia [Unknown]
  - Withdrawal syndrome [Unknown]
